FAERS Safety Report 5413349-0 (Version None)
Quarter: 2007Q3

REPORT INFORMATION
  Report Type: 
  Country: None (occurrence: None)
  Receive Date: 20070814
  Receipt Date: 20070806
  Transmission Date: 20080115
  Serious: Yes (Hospitalization)
  Sender: FDA-Public Use
  Company Number: FR-BRISTOL-MYERS SQUIBB COMPANY-13870506

PATIENT
  Age: 61 Year
  Sex: Female

DRUGS (5)
  1. GLUCOVANCE [Suspect]
     Dates: end: 20070407
  2. DETENSIEL [Concomitant]
     Indication: TACHYCARDIA
  3. COAPROVEL [Concomitant]
     Indication: HYPERTENSION
  4. HYPERIUM [Concomitant]
     Indication: HYPERTENSION
  5. TAHOR [Concomitant]
     Indication: HYPERCHOLESTEROLAEMIA

REACTIONS (3)
  - LACTIC ACIDOSIS [None]
  - PRODUCTIVE COUGH [None]
  - RENAL FAILURE ACUTE [None]
